FAERS Safety Report 16839220 (Version 2)
Quarter: 2019Q3

REPORT INFORMATION
  Report Type: Spontaneous
  Country: AU (occurrence: AU)
  Receive Date: 20190923
  Receipt Date: 20190927
  Transmission Date: 20191005
  Serious: Yes (Hospitalization, Other)
  Sender: FDA-Public Use
  Company Number: AU-JNJFOC-20190916391

PATIENT
  Age: 38 Year
  Sex: Female
  Weight: 90 kg

DRUGS (4)
  1. OLANZAPINE. [Concomitant]
     Active Substance: OLANZAPINE
     Indication: SCHIZOPHRENIA
     Dosage: (REGULAR DOSE AND PRN)
     Route: 048
  2. BENZOTROPINE [Concomitant]
     Active Substance: BENZTROPINE
     Indication: PROPHYLAXIS
  3. INVEGA SUSTENNA [Suspect]
     Active Substance: PALIPERIDONE PALMITATE
     Route: 030
     Dates: start: 20190730
  4. INVEGA SUSTENNA [Suspect]
     Active Substance: PALIPERIDONE PALMITATE
     Indication: SCHIZOPHRENIA
     Route: 030

REACTIONS (7)
  - Blood creatine phosphokinase increased [Recovered/Resolved]
  - Respiratory tract infection [Unknown]
  - Renal impairment [Recovering/Resolving]
  - Musculoskeletal stiffness [Unknown]
  - Mental impairment [Unknown]
  - Urinary tract infection [Not Recovered/Not Resolved]
  - Drug ineffective [Unknown]
